FAERS Safety Report 15440173 (Version 2)
Quarter: 2018Q3

REPORT INFORMATION
  Report Type: Spontaneous
  Country: BR (occurrence: BR)
  Receive Date: 20180928
  Receipt Date: 20180928
  Transmission Date: 20181010
  Serious: Yes (Life-Threatening, Other)
  Sender: FDA-Public Use
  Company Number: PHHY2018BR109999

PATIENT
  Age: 38 Year
  Sex: Female

DRUGS (2)
  1. CICLOSPORIN [Suspect]
     Active Substance: CYCLOSPORINE
     Indication: PUSTULAR PSORIASIS
     Dosage: UNK
     Route: 065
     Dates: start: 2010, end: 2013
  2. METHOTREXATE. [Suspect]
     Active Substance: METHOTREXATE
     Indication: PUSTULAR PSORIASIS
     Route: 065

REACTIONS (8)
  - Suicide attempt [Unknown]
  - Rash pustular [Unknown]
  - Dactylitis [Unknown]
  - Renal impairment [Unknown]
  - Arthralgia [Unknown]
  - Skin lesion [Recovering/Resolving]
  - Hepatic function abnormal [Unknown]
  - Enthesopathy [Recovering/Resolving]

NARRATIVE: CASE EVENT DATE: 201804
